FAERS Safety Report 9536566 (Version 1)
Quarter: 2013Q2

REPORT INFORMATION
  Report Type: Spontaneous
  Country: US (occurrence: None)
  Receive Date: 20130510
  Receipt Date: 20130510
  Transmission Date: 20140414
  Serious: No
  Sender: FDA-Public Use
  Company Number: US-011425

PATIENT
  Age: 72 Year
  Sex: Female
  Weight: 63.5 kg

DRUGS (5)
  1. PICO-SALIX [Suspect]
     Indication: COLOSTOMY
     Dosage: (ORAL)
     Route: 048
     Dates: start: 20130411, end: 20130411
  2. SIMVASTATIN [Concomitant]
  3. DOXYCYCLINE [Concomitant]
  4. ALENDRONATE [Concomitant]
  5. MULTIVITAMIN /05992801/ [Concomitant]

REACTIONS (7)
  - Retching [None]
  - Feeling hot [None]
  - Tremor [None]
  - Muscle spasms [None]
  - Vomiting [None]
  - Nausea [None]
  - Off label use [None]
